FAERS Safety Report 10052886 (Version 1)
Quarter: 2014Q1

REPORT INFORMATION
  Report Type: Spontaneous
  Country: PL (occurrence: None)
  Receive Date: 20140331
  Receipt Date: 20140331
  Transmission Date: 20141002
  Serious: Yes (Death, Hospitalization)
  Sender: FDA-Public Use
  Company Number: 2014P1002462

PATIENT
  Age: 19 Year
  Sex: Male

DRUGS (6)
  1. RIFAMPIN [Suspect]
     Route: 048
  2. ISONIAZID [Suspect]
     Route: 048
  3. PYRAZINAMIDE [Suspect]
     Route: 048
  4. KETOPROFENE [Suspect]
  5. ALCOHOL [Suspect]
     Route: 048
  6. UNSPECIFIED [Suspect]

REACTIONS (30)
  - Poisoning [None]
  - Cardiotoxicity [None]
  - Cardiogenic shock [None]
  - Pulmonary oedema [None]
  - Acute coronary syndrome [None]
  - Completed suicide [None]
  - Dyspnoea [None]
  - Hyperhidrosis [None]
  - Tremor [None]
  - Pruritus [None]
  - Red man syndrome [None]
  - Somnolence [None]
  - Hyperventilation [None]
  - Skin discolouration [None]
  - Overdose [None]
  - Nausea [None]
  - Vomiting [None]
  - Blood pressure decreased [None]
  - Sinus tachycardia [None]
  - Respiratory alkalosis [None]
  - Hypokalaemia [None]
  - Metabolic acidosis [None]
  - Arrhythmia [None]
  - Bradycardia [None]
  - Tachycardia [None]
  - Cardiac arrest [None]
  - Ventricular fibrillation [None]
  - Cardiac arrest [None]
  - Brain oedema [None]
  - Hyperaemia [None]
